FAERS Safety Report 22214543 (Version 1)
Quarter: 2023Q2

REPORT INFORMATION
  Report Type: Spontaneous
  Country: US (occurrence: US)
  Receive Date: 20230415
  Receipt Date: 20230415
  Transmission Date: 20230721
  Serious: No
  Sender: FDA-Public Use
  Company Number: US-drreddys-SPO/USA/23/0162958

PATIENT
  Age: 23 Year
  Sex: Female

DRUGS (1)
  1. ACCUTANE [Suspect]
     Active Substance: ISOTRETINOIN
     Indication: Product used for unknown indication
     Dosage: RMA ISSUE DATE: 11 OCTOBER 2022 07:12:20 PM, 22 NOVEMBER 2022 06:32:33 PM, 20 DECEMBER 2022 05:47:18

REACTIONS (1)
  - Headache [Unknown]
